FAERS Safety Report 5810155-X (Version None)
Quarter: 2008Q3

REPORT INFORMATION
  Report Type: 
  Country: None (occurrence: None)
  Receive Date: 20080715
  Receipt Date: 20070815
  Transmission Date: 20090109
  Serious: No
  Sender: FDA-Public Use
  Company Number: A0670650A

PATIENT
  Age: 38 Year
  Sex: Female

DRUGS (6)
  1. IMITREX [Suspect]
     Indication: MIGRAINE
     Route: 048
  2. LISINOPRIL [Concomitant]
  3. NADOLOL [Concomitant]
  4. AMITRIPTYLINE HCL [Concomitant]
  5. VITAMIN B-12 [Concomitant]
  6. ASPIRIN [Concomitant]

REACTIONS (3)
  - BURNING SENSATION [None]
  - CAPILLARY DISORDER [None]
  - STOMACH DISCOMFORT [None]
